FAERS Safety Report 10024237 (Version 5)
Quarter: 2015Q2

REPORT INFORMATION
  Report Type: Spontaneous
  Country: US (occurrence: US)
  Receive Date: 20140320
  Receipt Date: 20150605
  Transmission Date: 20150821
  Serious: Yes (Death, Hospitalization, Other)
  Sender: FDA-Public Use
  Company Number: US-SA-2014SA031712

PATIENT
  Age: 57 Year
  Sex: Female

DRUGS (8)
  1. PROTONIX [Concomitant]
     Active Substance: PANTOPRAZOLE SODIUM
     Route: 048
  2. PLAVIX [Suspect]
     Active Substance: CLOPIDOGREL BISULFATE
     Route: 048
     Dates: start: 20070611
  3. NORVASC [Concomitant]
     Active Substance: AMLODIPINE BESYLATE
     Route: 048
  4. LOPRESSOR [Concomitant]
     Active Substance: METOPROLOL TARTRATE
     Route: 048
  5. CARAFATE [Concomitant]
     Active Substance: SUCRALFATE
  6. QUESTRAN [Concomitant]
     Active Substance: CHOLESTYRAMINE
     Dosage: DOSE: 4 G POWDER
     Route: 048
  7. HUMALOG [Concomitant]
     Active Substance: INSULIN LISPRO
  8. ASPIRIN. [Concomitant]
     Active Substance: ASPIRIN
     Route: 048

REACTIONS (9)
  - Nausea [Unknown]
  - Diarrhoea [Unknown]
  - Multiple injuries [Unknown]
  - Death [Fatal]
  - Asthenia [Unknown]
  - Gastrointestinal haemorrhage [Unknown]
  - Vomiting [Unknown]
  - Fatigue [Unknown]
  - Abdominal pain upper [Unknown]

NARRATIVE: CASE EVENT DATE: 200809
